FAERS Safety Report 23260609 (Version 1)
Quarter: 2023Q4

REPORT INFORMATION
  Report Type: Spontaneous
  Country: None (occurrence: IT)
  Receive Date: 20231205
  Receipt Date: 20231205
  Transmission Date: 20240110
  Serious: Yes (Death, Other)
  Sender: FDA-Public Use
  Company Number: IT-Oxford Pharmaceuticals, LLC-2148991

PATIENT
  Age: 56 Year
  Sex: Male
  Weight: 73 kg

DRUGS (3)
  1. AMLODIPINE BESYLATE [Suspect]
     Active Substance: AMLODIPINE BESYLATE
     Indication: Product used for unknown indication
  2. DOXAZOSIN [Suspect]
     Active Substance: DOXAZOSIN MESYLATE
  3. CARVEDILOL [Suspect]
     Active Substance: CARVEDILOL

REACTIONS (2)
  - Completed suicide [Fatal]
  - Overdose [Fatal]
